FAERS Safety Report 18492063 (Version 1)
Quarter: 2020Q4

REPORT INFORMATION
  Report Type: Spontaneous
  Country: US (occurrence: US)
  Receive Date: 20201111
  Receipt Date: 20201111
  Transmission Date: 20210114
  Serious: Yes (Death, Other)
  Sender: FDA-Public Use
  Company Number: US-PFIZER INC-2020437875

PATIENT
  Age: 47 Year
  Sex: Male

DRUGS (3)
  1. LEUCOVORIN CALCIUM. [Concomitant]
     Active Substance: LEUCOVORIN CALCIUM
     Dosage: 150 MG/SQ M EVERY SIX HOURS
  2. METHOTREXATE SODIUM. [Suspect]
     Active Substance: METHOTREXATE SODIUM
     Indication: CHONDROSARCOMA
     Dosage: 5520 MG/SQ M, DURING A 42-HOUR INFUSION
     Route: 042
  3. LEUCOVORIN CALCIUM. [Concomitant]
     Active Substance: LEUCOVORIN CALCIUM
     Dosage: 96 MG/SQ M (12 MG/SQ M EVERY SIX HOURS)
     Route: 042

REACTIONS (3)
  - Acute kidney injury [Fatal]
  - Product use in unapproved indication [Unknown]
  - Off label use [Unknown]
